FAERS Safety Report 6100608-1 (Version None)
Quarter: 2009Q1

REPORT INFORMATION
  Report Type: 
  Country: None (occurrence: None)
  Receive Date: 20090223
  Receipt Date: 20090215
  Transmission Date: 20090719
  Serious: Yes (Other)
  Sender: FDA-Public Use
  Company Number: CHPA2009US04076

PATIENT
  Age: 9 Year
  Sex: Female
  Weight: 47.6 kg

DRUGS (2)
  1. TRIAMINIC SRT [Suspect]
     Indication: NASOPHARYNGITIS
     Dosage: 2 TSP, BID, ORAL, 2 TSP, BID, ORAL
     Route: 048
     Dates: end: 20090208
  2. TRIAMINIC NITGHT TIME COLD + COUGH (NCH) (DIPHENHYDRAMINE, PHENYLEPHRI [Suspect]
     Indication: NASOPHARYNGITIS
     Dosage: 2 TSP, QHS, ORAL
     Route: 048
     Dates: end: 20090208

REACTIONS (2)
  - DEAFNESS [None]
  - INTENTIONAL DRUG MISUSE [None]
